APPROVED DRUG PRODUCT: CLINDAMYCIN PHOSPHATE
Active Ingredient: CLINDAMYCIN PHOSPHATE
Strength: EQ 1% BASE
Dosage Form/Route: SWAB;TOPICAL
Application: A219612 | Product #001 | TE Code: AT
Applicant: CARNEGIE PHARMACEUTICALS LLC
Approved: Jun 13, 2025 | RLD: No | RS: No | Type: RX